FAERS Safety Report 11067786 (Version 3)
Quarter: 2015Q2

REPORT INFORMATION
  Report Type: Spontaneous
  Country: BG (occurrence: BG)
  Receive Date: 20150427
  Receipt Date: 20150603
  Transmission Date: 20150821
  Serious: Yes (Other)
  Sender: FDA-Public Use
  Company Number: BG-AMGEN-BGRSP2015039929

PATIENT
  Age: 63 Year
  Sex: Male
  Weight: 63 kg

DRUGS (13)
  1. LEUCOVORIN                         /00566701/ [Concomitant]
     Active Substance: LEUCOVORIN
     Dosage: 400 MG/M2, 2-HOUR INFUSION, 1 DAY, UNK
     Route: 042
     Dates: start: 20140613
  2. OXALIPLATIN. [Suspect]
     Active Substance: OXALIPLATIN
     Indication: COLORECTAL CANCER METASTATIC
     Dosage: 140 MG, 1D
     Route: 042
     Dates: start: 20130403, end: 20140328
  3. 5-FU                               /00098801/ [Concomitant]
     Active Substance: FLUOROURACIL
     Dosage: 600 MG/M2, 22-HOURS INFUSION 1-2 DAY, UNK
     Route: 042
     Dates: start: 20130403
  4. BEVACIZUMAB [Concomitant]
     Active Substance: BEVACIZUMAB
     Indication: COLORECTAL CANCER METASTATIC
     Dosage: UNK
  5. CETUXIMAB [Concomitant]
     Active Substance: CETUXIMAB
     Indication: COLORECTAL CANCER METASTATIC
     Dosage: UNK
  6. FILGRASTIM [Suspect]
     Active Substance: FILGRASTIM
     Indication: HAEMATOTOXICITY
     Dosage: UNK
     Route: 065
  7. LEUCOVORIN                         /00566701/ [Concomitant]
     Active Substance: LEUCOVORIN
     Indication: COLORECTAL CANCER METASTATIC
     Dosage: 60 MG, 1 D
     Route: 042
     Dates: start: 20130403, end: 20140328
  8. VECTIBIX [Suspect]
     Active Substance: PANITUMUMAB
     Indication: COLORECTAL CANCER METASTATIC
     Dosage: 6 MG/KG, EVERY 14 DAYS
     Route: 042
     Dates: start: 20130403, end: 20141203
  9. 5-FU                               /00098801/ [Concomitant]
     Active Substance: FLUOROURACIL
     Dosage: 2400 MG/M2, 46-HOURS INFUSION, UNK
     Dates: start: 20140613
  10. 5-FU                               /00098801/ [Concomitant]
     Active Substance: FLUOROURACIL
     Dosage: 400 MG/M2, 1 DAY, UNK
     Route: 040
     Dates: start: 20140613
  11. IRINOTECAN [Concomitant]
     Active Substance: IRINOTECAN
     Indication: COLORECTAL CANCER METASTATIC
     Dosage: 180 MG/M2, 30 MIN., 1 DAY, UNK
     Route: 042
     Dates: start: 20140613
  12. 5-FU                               /00098801/ [Concomitant]
     Active Substance: FLUOROURACIL
     Indication: COLORECTAL CANCER METASTATIC
     Dosage: 800 MG, 1 D
     Route: 042
     Dates: start: 20130403, end: 20140328
  13. XELODA [Concomitant]
     Active Substance: CAPECITABINE
     Indication: COLORECTAL CANCER METASTATIC
     Dosage: UNK

REACTIONS (5)
  - Skin toxicity [Unknown]
  - Neurotoxicity [Recovered/Resolved]
  - Gastrointestinal toxicity [Unknown]
  - Disease progression [Unknown]
  - Haematotoxicity [Unknown]

NARRATIVE: CASE EVENT DATE: 20130417
